FAERS Safety Report 7273276-3 (Version None)
Quarter: 2011Q1

REPORT INFORMATION
  Report Type: 
  Country: None (occurrence: None)
  Receive Date: 20110203
  Receipt Date: 20101117
  Transmission Date: 20110831
  Serious: No
  Sender: FDA-Public Use
  Company Number: US-ABBOTT-10P-163-0683731-00

PATIENT
  Sex: Female
  Weight: 57.658 kg

DRUGS (1)
  1. SYNTHROID [Suspect]
     Indication: HYPOTHYROIDISM
     Dosage: ONE AND A HALF TABLETS DAILY
     Dates: start: 20060101

REACTIONS (3)
  - TONGUE DISORDER [None]
  - VITAMIN D DEFICIENCY [None]
  - WRONG TECHNIQUE IN DRUG USAGE PROCESS [None]
